FAERS Safety Report 9448446 (Version 5)
Quarter: 2014Q1

REPORT INFORMATION
  Report Type: Report from Study
  Country: KR (occurrence: KR)
  Receive Date: 20130808
  Receipt Date: 20140124
  Transmission Date: 20141002
  Serious: Yes (Hospitalization, Other)
  Sender: FDA-Public Use
  Company Number: KR-ELI_LILLY_AND_COMPANY-KR201308000189

PATIENT
  Age: 76 Year
  Sex: Male

DRUGS (8)
  1. LISPRO 50LIS50NPL KWIKPEN / MIRIOPEN [Suspect]
     Indication: TYPE 2 DIABETES MELLITUS
     Dosage: 50 U, EACH MORNING
     Route: 058
     Dates: start: 201307
  2. LISPRO 50LIS50NPL KWIKPEN / MIRIOPEN [Suspect]
     Dosage: 38 U, EACH MORNING
     Route: 065
     Dates: start: 201307
  3. LISPRO 50LIS50NPL KWIKPEN / MIRIOPEN [Suspect]
     Dosage: 2 U, QD
     Route: 065
     Dates: start: 201307
  4. LISPRO 50LIS50NPL KWIKPEN / MIRIOPEN [Suspect]
     Dosage: 40 U, EACH EVENING
     Route: 065
     Dates: start: 201307
  5. LISPRO 50LIS50NPL KWIKPEN / MIRIOPEN [Suspect]
     Dosage: 38 U, EACH MORNING
     Route: 065
  6. LISPRO 50LIS50NPL KWIKPEN / MIRIOPEN [Suspect]
     Dosage: 36 U, EACH EVENING
     Route: 065
  7. LISPRO 50LIS50NPL KWIKPEN / MIRIOPEN [Suspect]
     Dosage: 40 U, EACH MORNING
     Route: 065
  8. LISPRO 50LIS50NPL KWIKPEN / MIRIOPEN [Suspect]
     Dosage: 38 U, EACH EVENING
     Route: 065

REACTIONS (10)
  - Dizziness [Recovered/Resolved]
  - Tremor [Recovered/Resolved]
  - Diabetes mellitus inadequate control [Unknown]
  - Gout [Recovered/Resolved]
  - Hypoglycaemic unconsciousness [Recovered/Resolved]
  - Tremor [Recovered/Resolved]
  - Dizziness [Recovered/Resolved]
  - Asthenia [Not Recovered/Not Resolved]
  - Anxiety [Not Recovered/Not Resolved]
  - Tremor [Not Recovered/Not Resolved]
